FAERS Safety Report 7282103-X (Version None)
Quarter: 2011Q1

REPORT INFORMATION
  Report Type: 
  Country: None (occurrence: None)
  Receive Date: 20110208
  Receipt Date: 20110203
  Transmission Date: 20110831
  Serious: Yes (Hospitalization)
  Sender: FDA-Public Use
  Company Number: GB-MERCK-1101GBR00106

PATIENT
  Sex: Male

DRUGS (4)
  1. OMEPRAZOLE [Concomitant]
     Route: 065
  2. FOSAMAX PLUS D [Suspect]
     Indication: TEMPORAL ARTERITIS
     Route: 048
     Dates: start: 20080101
  3. PREDNISOLONE [Concomitant]
     Indication: ARTHRITIS
     Route: 065
  4. FOSAMAX PLUS D [Suspect]
     Route: 048
     Dates: start: 20090101, end: 20090101

REACTIONS (4)
  - ABDOMINAL PAIN UPPER [None]
  - DIARRHOEA [None]
  - PAIN [None]
  - GASTRIC HAEMORRHAGE [None]
